FAERS Safety Report 8494081-6 (Version None)
Quarter: 2012Q2

REPORT INFORMATION
  Report Type: 
  Country: None (occurrence: None)
  Receive Date: 20120629
  Receipt Date: 20120629
  Transmission Date: 20120825
  Serious: Yes (Death)
  Sender: FDA-Public Use
  Company Number: None

PATIENT
  Sex: Female

DRUGS (1)
  1. CLOZAPINE [Suspect]
     Indication: BIPOLAR I DISORDER
     Dosage: 400MG QD PO
     Route: 048
     Dates: start: 20110101, end: 20110303

REACTIONS (5)
  - SEPSIS [None]
  - LACTIC ACIDOSIS [None]
  - UNRESPONSIVE TO STIMULI [None]
  - IRRITABILITY [None]
  - INTESTINAL ISCHAEMIA [None]
